FAERS Safety Report 16394252 (Version 1)
Quarter: 2019Q2

REPORT INFORMATION
  Report Type: Spontaneous
  Country: ES (occurrence: ES)
  Receive Date: 20190605
  Receipt Date: 20190605
  Transmission Date: 20190711
  Serious: Yes (Life-Threatening, Hospitalization)
  Sender: FDA-Public Use
  Company Number: ES-OTSUKA-2019_021874

PATIENT
  Age: 3 Year
  Sex: Female

DRUGS (11)
  1. MITOXANTRONA [Suspect]
     Active Substance: MITOXANTRONE HYDROCHLORIDE
     Indication: ACUTE MYELOID LEUKAEMIA
     Dosage: SHOP-LAM 2007
     Route: 042
     Dates: start: 20160401, end: 201605
  2. METHOTREXATE (METHOTREXATE SODIUM) [Suspect]
     Active Substance: METHOTREXATE SODIUM
     Indication: STEM CELL TRANSPLANT
     Dosage: PAUTA CORTA 4 DOSIS
     Route: 065
     Dates: start: 201606, end: 201606
  3. FLUDARABINA [Suspect]
     Active Substance: FLUDARABINE PHOSPHATE
     Indication: BONE MARROW CONDITIONING REGIMEN
     Dosage: 50 MG/M2, UNKNOWN
     Route: 042
     Dates: start: 20160608, end: 20160610
  4. BUSULFAN. [Suspect]
     Active Substance: BUSULFAN
     Indication: BONE MARROW CONDITIONING REGIMEN
     Dosage: 4.8 MG/KG, UNKNOWN
     Route: 042
     Dates: start: 20160608, end: 20160610
  5. THIOTEPA. [Suspect]
     Active Substance: THIOTEPA
     Indication: BONE MARROW CONDITIONING REGIMEN
     Dosage: 5 MG/KG, UNKNOWN
     Route: 042
     Dates: start: 20160608, end: 20160609
  6. CICLOSPORINA [Suspect]
     Active Substance: CYCLOSPORINE
     Indication: STEM CELL TRANSPLANT
     Dosage: UNK DF, UNKNOWN
     Route: 042
     Dates: start: 20160614, end: 20161014
  7. TIMOGLOBULINA [Suspect]
     Active Substance: LAPINE T-LYMPHOCYTE IMMUNE GLOBULIN
     Indication: BONE MARROW CONDITIONING REGIMEN
     Dosage: 2 MG/KG, UNKNOWN
     Route: 042
     Dates: start: 20160608, end: 20160610
  8. ETOPOSIDO [Suspect]
     Active Substance: ETOPOSIDE
     Indication: ACUTE MYELOID LEUKAEMIA
     Dosage: SHOP-LAM 2007
     Route: 042
     Dates: start: 20160201, end: 20160401
  9. MICOFENOLATO MOFETILE [Suspect]
     Active Substance: MYCOPHENOLATE SODIUM
     Indication: STEM CELL TRANSPLANT
     Dosage: UNK DF, UNKNOWN
     Route: 065
     Dates: start: 20160724, end: 201609
  10. CYTOSINE ARABINOSIDE [Suspect]
     Active Substance: CYTARABINE
     Indication: ACUTE MYELOID LEUKAEMIA
     Dosage: SHOP-LAM 2007
     Route: 042
     Dates: start: 20160129, end: 201605
  11. IDARUBICIN [Suspect]
     Active Substance: IDARUBICIN
     Indication: ACUTE MYELOID LEUKAEMIA
     Dosage: SHOP-LAM 2007
     Route: 042
     Dates: start: 20160201, end: 20160401

REACTIONS (1)
  - Post transplant lymphoproliferative disorder [Recovered/Resolved with Sequelae]

NARRATIVE: CASE EVENT DATE: 20160923
